FAERS Safety Report 12115713 (Version 1)
Quarter: 2016Q1

REPORT INFORMATION
  Report Type: Spontaneous
  Country: US (occurrence: US)
  Receive Date: 20160225
  Receipt Date: 20160225
  Transmission Date: 20160526
  Serious: Yes (Hospitalization, Other)
  Sender: FDA-Public Use
  Company Number: US-BAYER-2016-033125

PATIENT
  Age: 23 Year
  Sex: Male

DRUGS (6)
  1. PRASUGREL [Concomitant]
     Active Substance: PRASUGREL
     Dosage: 10 MG, QD
  2. ACETYLSALICYLIC ACID({=100 MG) [Suspect]
     Active Substance: ASPIRIN
     Dosage: 81 MG, QD
  3. ENOXAPARIN [Suspect]
     Active Substance: ENOXAPARIN
     Dosage: 70 MG, BID
  4. RIVAROXABAN [Suspect]
     Active Substance: RIVAROXABAN
     Dosage: 20 MG, QD
  5. WARFARIN [Suspect]
     Active Substance: WARFARIN
  6. CLOPIDOGREL [Suspect]
     Active Substance: CLOPIDOGREL BISULFATE
     Dosage: 75 MG, QD

REACTIONS (3)
  - Acute myocardial infarction [None]
  - Drug ineffective [None]
  - Deep vein thrombosis [None]
